FAERS Safety Report 18432386 (Version 1)
Quarter: 2020Q4

REPORT INFORMATION
  Report Type: Spontaneous
  Country: CA (occurrence: CA)
  Receive Date: 20201027
  Receipt Date: 20201027
  Transmission Date: 20210114
  Serious: Yes (Death, Other)
  Sender: FDA-Public Use
  Company Number: CA-PFIZER INC-2020412857

PATIENT
  Age: 54 Year
  Sex: Female

DRUGS (5)
  1. PROCARBAZINE [Concomitant]
     Active Substance: PROCARBAZINE
     Dosage: UNK
  2. LEVOTHYROXINE. [Concomitant]
     Active Substance: LEVOTHYROXINE
     Dosage: UNK
  3. PHENYTOIN. [Concomitant]
     Active Substance: PHENYTOIN
     Dosage: UNK
  4. ATORVASTATIN CALCIUM. [Suspect]
     Active Substance: ATORVASTATIN CALCIUM
     Indication: BRAIN NEOPLASM MALIGNANT
     Dosage: 560 MG, CYCLIC (1 EVERY 2 WEEKS)
     Route: 042
  5. ETOPOSIDE. [Suspect]
     Active Substance: ETOPOSIDE
     Dosage: UNK

REACTIONS (8)
  - Terminal state [Fatal]
  - Body temperature increased [Fatal]
  - Somnolence [Fatal]
  - Mobility decreased [Fatal]
  - Product use in unapproved indication [Unknown]
  - Swelling [Fatal]
  - Off label use [Unknown]
  - Product use issue [Unknown]
